FAERS Safety Report 12124616 (Version 4)
Quarter: 2017Q1

REPORT INFORMATION
  Report Type: Spontaneous
  Country: US (occurrence: US)
  Receive Date: 20160229
  Receipt Date: 20170301
  Transmission Date: 20170428
  Serious: Yes (Other)
  Sender: FDA-Public Use
  Company Number: US-AMGEN-USASP2016022659

PATIENT
  Age: 77 Year
  Sex: Female
  Weight: 81.5 kg

DRUGS (1)
  1. REPATHA [Suspect]
     Active Substance: EVOLOCUMAB
     Indication: BLOOD CHOLESTEROL INCREASED
     Dosage: 140 MG, Q2WK
     Route: 058
     Dates: start: 20160104

REACTIONS (6)
  - Headache [Recovering/Resolving]
  - Nasal congestion [Unknown]
  - Sinus congestion [Recovering/Resolving]
  - Hypersensitivity [Unknown]
  - Dizziness [Recovering/Resolving]
  - Pulmonary congestion [Recovering/Resolving]

NARRATIVE: CASE EVENT DATE: 20160120
